FAERS Safety Report 21054434 (Version 3)
Quarter: 2022Q4

REPORT INFORMATION
  Report Type: Report from Study
  Country: KR (occurrence: KR)
  Receive Date: 20220707
  Receipt Date: 20221013
  Transmission Date: 20230113
  Serious: Yes (Death, Hospitalization, Other)
  Sender: FDA-Public Use
  Company Number: KR-BRISTOL-MYERS SQUIBB COMPANY-2022-046356

PATIENT
  Age: 63 Year
  Sex: Female

DRUGS (4)
  1. POMALYST [Suspect]
     Active Substance: POMALIDOMIDE
     Indication: Plasma cell myeloma
     Route: 065
     Dates: start: 20220119, end: 20220301
  2. POMALYST [Suspect]
     Active Substance: POMALIDOMIDE
     Indication: Colitis
     Route: 065
     Dates: start: 20220311, end: 20220331
  3. POMALYST [Suspect]
     Active Substance: POMALIDOMIDE
     Indication: Pneumonia
     Route: 065
     Dates: start: 20220413, end: 20220509
  4. DEXAMETHASONE [Concomitant]
     Active Substance: DEXAMETHASONE
     Indication: Product used for unknown indication
     Dosage: DOSE PER CYCLE: 152.5MG/CYCLE
     Route: 065

REACTIONS (2)
  - Hodgkin^s disease [Recovering/Resolving]
  - Cerebral haemorrhage [Fatal]

NARRATIVE: CASE EVENT DATE: 20220510
